FAERS Safety Report 16897275 (Version 2)
Quarter: 2020Q1

REPORT INFORMATION
  Report Type: Spontaneous
  Country: US (occurrence: US)
  Receive Date: 20191009
  Receipt Date: 20200131
  Transmission Date: 20200409
  Serious: No
  Sender: FDA-Public Use
  Company Number: US-ELI_LILLY_AND_COMPANY-US201910002177

PATIENT
  Age: 59 Year
  Sex: Male
  Weight: 58 kg

DRUGS (6)
  1. CIALIS [Suspect]
     Active Substance: TADALAFIL
     Indication: ERECTILE DYSFUNCTION
     Dosage: 20 MG, UNKNOWN
     Route: 048
  2. MUCINEX [Concomitant]
     Active Substance: GUAIFENESIN
     Indication: HYPERSENSITIVITY
  3. CLARITIN-D NOS [Concomitant]
     Active Substance: LORATADINE\PSEUDOEPHEDRINE SULFATE
     Indication: SEASONAL ALLERGY
  4. CLARITIN-D NOS [Concomitant]
     Active Substance: LORATADINE\PSEUDOEPHEDRINE SULFATE
     Indication: HYPERSENSITIVITY
  5. VIAGRA [Suspect]
     Active Substance: SILDENAFIL CITRATE
     Indication: ERECTILE DYSFUNCTION
     Dosage: 50 MG, PRN (CUT 100 MG INTO HALF)
     Route: 065
     Dates: start: 201911
  6. MUCINEX [Concomitant]
     Active Substance: GUAIFENESIN
     Indication: SEASONAL ALLERGY

REACTIONS (7)
  - Dyspepsia [Recovered/Resolved]
  - Erectile dysfunction [Unknown]
  - Cyanopsia [Unknown]
  - Fatigue [Recovered/Resolved]
  - Wrong technique in product usage process [Unknown]
  - Abdominal distension [Unknown]
  - Flatulence [Unknown]

NARRATIVE: CASE EVENT DATE: 201607
